FAERS Safety Report 8927172 (Version 1)
Quarter: 2012Q4

REPORT INFORMATION
  Report Type: 
  Country: US (occurrence: US)
  Receive Date: 20121127
  Receipt Date: 20121127
  Transmission Date: 20130627
  Serious: Yes (Other)
  Sender: FDA-Public Use
  Company Number: US-UCBSA-071456

PATIENT
  Age: 38 Year
  Sex: Male

DRUGS (2)
  1. VIMPAT [Suspect]
     Indication: CONVULSION
  2. TOPAMAX [Concomitant]
     Indication: EPILEPSY

REACTIONS (1)
  - Convulsion [Unknown]
